FAERS Safety Report 13210550 (Version 2)
Quarter: 2017Q2

REPORT INFORMATION
  Report Type: Spontaneous
  Country: US (occurrence: US)
  Receive Date: 20170209
  Receipt Date: 20170606
  Transmission Date: 20170830
  Serious: No
  Sender: FDA-Public Use
  Company Number: US-TEVA-735120ACC

PATIENT
  Age: 45 Year
  Sex: Female

DRUGS (3)
  1. NADOLOL. [Concomitant]
     Active Substance: NADOLOL
  2. LEVOTHYROXINE. [Concomitant]
     Active Substance: LEVOTHYROXINE
  3. COPAXONE [Suspect]
     Active Substance: GLATIRAMER ACETATE
     Indication: MULTIPLE SCLEROSIS
     Route: 058
     Dates: start: 20150129

REACTIONS (3)
  - Viral upper respiratory tract infection [Not Recovered/Not Resolved]
  - Injection site mass [Not Recovered/Not Resolved]
  - Drug dose omission [Unknown]

NARRATIVE: CASE EVENT DATE: 201501
